FAERS Safety Report 4391939-4 (Version None)
Quarter: 2004Q3

REPORT INFORMATION
  Report Type: 
  Country: None (occurrence: None)
  Receive Date: 20040701
  Receipt Date: 20040610
  Transmission Date: 20050211
  Serious: Yes (Other)
  Sender: FDA-Public Use
  Company Number: USA040669891

PATIENT
  Age: 77 Year
  Sex: Male
  Weight: 77 kg

DRUGS (1)
  1. HUMALOG [Suspect]
     Dates: start: 20030101

REACTIONS (6)
  - EYE HAEMORRHAGE [None]
  - EYE SWELLING [None]
  - MEDICATION ERROR [None]
  - PHARMACEUTICAL PRODUCT COMPLAINT [None]
  - PHOTOPHOBIA [None]
  - VISUAL ACUITY REDUCED [None]
